FAERS Safety Report 4903320-7 (Version None)
Quarter: 2006Q1

REPORT INFORMATION
  Report Type: 
  Country: None (occurrence: None)
  Receive Date: 20060206
  Receipt Date: 20060206
  Transmission Date: 20060701
  Serious: Yes (Other)
  Sender: FDA-Public Use
  Company Number: None

PATIENT
  Age: 54 Year
  Sex: Female

DRUGS (2)
  1. FUROSEMIDE [Suspect]
     Dosage: 2 TABS DAILY
     Dates: start: 20050819
  2. FUROSEMIDE [Suspect]
     Dosage: 2 TABS DAILY
     Dates: start: 20051114

REACTIONS (2)
  - DRUG EFFECT DECREASED [None]
  - PHARMACEUTICAL PRODUCT COMPLAINT [None]
